FAERS Safety Report 9969694 (Version 1)
Quarter: 2014Q1

REPORT INFORMATION
  Report Type: Spontaneous
  Country: US (occurrence: None)
  Receive Date: 20140131
  Receipt Date: 20140131
  Transmission Date: 20141002
  Serious: Yes (Hospitalization)
  Sender: FDA-Public Use
  Company Number: 090262

PATIENT
  Sex: 0

DRUGS (1)
  1. KEPPRA [Suspect]
     Dosage: 2000 MG, DOSE:  2000MG
     Dates: start: 2013, end: 2013

REACTIONS (5)
  - Psychotic disorder [None]
  - Anxiety [None]
  - Depression [None]
  - Mood swings [None]
  - Thinking abnormal [None]
